FAERS Safety Report 14465341 (Version 1)
Quarter: 2018Q1

REPORT INFORMATION
  Report Type: Other
  Country: US (occurrence: US)
  Receive Date: 20180131
  Receipt Date: 20180131
  Transmission Date: 20180509
  Serious: Yes (Other)
  Sender: FDA-Public Use
  Company Number: US-ACORDA-ACO_136892_2017

PATIENT
  Age: 61 Year
  Sex: Female

DRUGS (3)
  1. PROVIGIL [Concomitant]
     Active Substance: MODAFINIL
     Indication: PRODUCT USED FOR UNKNOWN INDICATION
     Dosage: UNK
     Route: 065
  2. AMPYRA [Suspect]
     Active Substance: DALFAMPRIDINE
     Indication: MULTIPLE SCLEROSIS
     Dosage: 10 MG, BID
     Route: 048
     Dates: start: 201204
  3. AMPYRA [Suspect]
     Active Substance: DALFAMPRIDINE
     Indication: GAIT DISTURBANCE
     Dosage: UNK

REACTIONS (5)
  - Rib fracture [Unknown]
  - Drug dose omission [Unknown]
  - Memory impairment [Unknown]
  - Clumsiness [Unknown]
  - Fall [Unknown]

NARRATIVE: CASE EVENT DATE: 20170301
